FAERS Safety Report 5466552-8 (Version None)
Quarter: 2007Q3

REPORT INFORMATION
  Report Type: 
  Country: None (occurrence: None)
  Receive Date: 20070820
  Receipt Date: 20070611
  Transmission Date: 20080115
  Serious: No
  Sender: FDA-Public Use
  Company Number: WAES 0706USA01964

PATIENT
  Age: 59 Year
  Sex: Female

DRUGS (2)
  1. JANUVIA [Suspect]
     Indication: TYPE 2 DIABETES MELLITUS
     Dosage: 100 MG DAILY PO
     Route: 048
     Dates: start: 20070308, end: 20070514
  2. METFORMIN HCL [Concomitant]

REACTIONS (6)
  - ANGIOEDEMA [None]
  - ANURIA [None]
  - BACK PAIN [None]
  - ERYTHEMA [None]
  - PRURITUS [None]
  - WEIGHT INCREASED [None]
